FAERS Safety Report 8989664 (Version 1)
Quarter: 2012Q4

REPORT INFORMATION
  Report Type: Report from Study
  Country: DE (occurrence: DE)
  Receive Date: 20121228
  Receipt Date: 20121228
  Transmission Date: 20130627
  Serious: Yes (Hospitalization)
  Sender: FDA-Public Use
  Company Number: DE-AMGEN-DEUCT2012083350

PATIENT
  Age: 55 Year
  Sex: Female

DRUGS (4)
  1. ETANERCEPT [Suspect]
     Indication: PRODUCT USED FOR UNKNOWN INDICATION
     Dosage: UNK
     Dates: start: 200401, end: 200406
  2. ETANERCEPT [Suspect]
     Dosage: UNK
     Dates: start: 200408, end: 200602
  3. ETANERCEPT [Suspect]
     Dosage: 50 mg, weekly
     Dates: start: 200603, end: 200912
  4. PREDNISOLONE [Concomitant]
     Dosage: 30/25 mg on alternate days

REACTIONS (1)
  - Synovitis [Recovered/Resolved]
